FAERS Safety Report 4299132-0 (Version None)
Quarter: 2004Q1

REPORT INFORMATION
  Report Type: 
  Country: None (occurrence: None)
  Receive Date: 20040217
  Receipt Date: 20040202
  Transmission Date: 20041129
  Serious: Yes (Death)
  Sender: FDA-Public Use
  Company Number: 2002003992

PATIENT
  Age: 3 Month
  Sex: Female
  Weight: 4.2 kg

DRUGS (2)
  1. SILDENAFIL (SILDENAFIL) [Suspect]
     Indication: PULMONARY HYPERTENSION
     Dosage: 8 MG (QID),ORAL
     Route: 048
     Dates: start: 20010519, end: 20010615
  2. FUROSEMIDE [Concomitant]

REACTIONS (6)
  - DISEASE PROGRESSION [None]
  - DISEASE RECURRENCE [None]
  - HAEMODYNAMIC INSTABILITY [None]
  - PULMONARY HYPERTENSION [None]
  - PULMONARY VEIN STENOSIS [None]
  - SURGICAL PROCEDURE REPEATED [None]
